FAERS Safety Report 9424454 (Version 2)
Quarter: 2013Q3

REPORT INFORMATION
  Report Type: Spontaneous
  Country: US (occurrence: None)
  Receive Date: 20130725
  Receipt Date: 20130821
  Transmission Date: 20140515
  Serious: Yes (Other)
  Sender: FDA-Public Use
  Company Number: 2013AP006712

PATIENT
  Age: 73 Year
  Sex: Female

DRUGS (4)
  1. PRAVASTATIN SODIUM [Suspect]
     Indication: CHEST PAIN
     Route: 048
     Dates: start: 20121030, end: 20130606
  2. PHENYTOIN [Concomitant]
  3. PHENOBARBITAL [Concomitant]
  4. ASPIRIN [Concomitant]

REACTIONS (9)
  - Urinary tract infection [None]
  - Pain in extremity [None]
  - Gait disturbance [None]
  - Pain [None]
  - Refusal of treatment by patient [None]
  - Myalgia [None]
  - Pain in extremity [None]
  - Pain in extremity [None]
  - Osteomyelitis [None]
